FAERS Safety Report 10052870 (Version 2)
Quarter: 2014Q2

REPORT INFORMATION
  Report Type: Spontaneous
  Country: US (occurrence: US)
  Receive Date: 20140402
  Receipt Date: 20140414
  Transmission Date: 20141212
  Serious: Yes (Other)
  Sender: FDA-Public Use
  Company Number: US-PFIZER INC-2014091900

PATIENT
  Age: 50 Year
  Sex: Female
  Weight: 63.49 kg

DRUGS (2)
  1. CELEBREX [Suspect]
     Indication: ARTHRALGIA
     Dosage: 200 MG, 1X/DAY
     Route: 048
  2. NORVASC [Concomitant]
     Dosage: 2.5 MG, UNK
     Dates: end: 201403

REACTIONS (5)
  - Leukaemia [Unknown]
  - Abdominal discomfort [Unknown]
  - Malaise [Unknown]
  - Vomiting [Unknown]
  - Gastrointestinal disorder [Unknown]
